FAERS Safety Report 20819648 (Version 1)
Quarter: 2022Q2

REPORT INFORMATION
  Report Type: Other
  Country: US (occurrence: None)
  Receive Date: 20220512
  Receipt Date: 20220512
  Transmission Date: 20220721
  Serious: No
  Sender: FDA-Public Use
  Company Number: US-ROCHE-2691341

PATIENT
  Age: 30 Year
  Sex: Female
  Weight: 53.118 kg

DRUGS (12)
  1. OCREVUS [Suspect]
     Active Substance: OCRELIZUMAB
     Indication: Relapsing-remitting multiple sclerosis
     Dosage: 300MG DAY 1 AND  ON DAY 15
     Route: 042
     Dates: start: 201901
  2. GABAPENTIN [Concomitant]
     Active Substance: GABAPENTIN
     Route: 048
     Dates: start: 2019
  3. BACLOFEN [Concomitant]
     Active Substance: BACLOFEN
     Indication: Muscle spasms
     Route: 048
     Dates: start: 2019
  4. OXYBUTYNIN [Concomitant]
     Active Substance: OXYBUTYNIN
     Route: 048
     Dates: start: 2019
  5. ERGOCALCIFEROL [Concomitant]
     Active Substance: ERGOCALCIFEROL
     Route: 048
  6. NITROFURANTOIN [Concomitant]
     Active Substance: NITROFURANTOIN
     Dosage: TAKES AT BEDTIME; STARTED ABOUT 3 MONTHS AGO OCREVUS WAS ON?SOMETHING SIMILAR PRIOR TO OCREVUS
     Route: 048
  7. VITAMIN D3 [Concomitant]
     Active Substance: CHOLECALCIFEROL
     Indication: Vitamin D deficiency
     Dosage: 2) 5000 IU GUMMIES WITH DINNER; STARTED AFTER OCREVUS
     Route: 048
  8. VITAMIN C [Concomitant]
     Active Substance: ASCORBIC ACID
     Dosage: STARTED AFTER OCREVUS
     Route: 048
  9. VITAMIN B COMPLEX [Concomitant]
     Active Substance: CYANOCOBALAMIN\DEXPANTHENOL\NIACINAMIDE\PYRIDOXINE HYDROCHLORIDE\RIBOFLAVIN 5^-PHOSPHATE SODIUM\THIA
     Route: 048
  10. CALCIUM MAGNESIUM ZINC VITAMIN D3 [Concomitant]
     Dosage: TAKES 4 CAPSULES ONCE A DAY; STARTED AFTER OCREVUS
     Route: 048
  11. BIOTIN [Concomitant]
     Active Substance: BIOTIN
  12. IRON [Concomitant]
     Active Substance: IRON

REACTIONS (14)
  - Alopecia [Not Recovered/Not Resolved]
  - COVID-19 [Recovered/Resolved]
  - Candida infection [Recovered/Resolved]
  - Arthralgia [Not Recovered/Not Resolved]
  - Pain of skin [Recovered/Resolved]
  - Anosmia [Not Recovered/Not Resolved]
  - Vitamin D deficiency [Not Recovered/Not Resolved]
  - Vitamin B complex deficiency [Not Recovered/Not Resolved]
  - Blood calcium decreased [Not Recovered/Not Resolved]
  - Blood magnesium decreased [Not Recovered/Not Resolved]
  - Blood zinc decreased [Not Recovered/Not Resolved]
  - Blood iron decreased [Not Recovered/Not Resolved]
  - Fall [Unknown]
  - Influenza [Recovered/Resolved]

NARRATIVE: CASE EVENT DATE: 20190101
